FAERS Safety Report 24086444 (Version 1)
Quarter: 2024Q3

REPORT INFORMATION
  Report Type: Spontaneous
  Country: US (occurrence: US)
  Receive Date: 20240712
  Receipt Date: 20240712
  Transmission Date: 20241017
  Serious: No
  Sender: BIOMARIN
  Company Number: US-BIOMARINAP-US-2024-159057

PATIENT

DRUGS (1)
  1. VOXZOGO [Suspect]
     Active Substance: VOSORITIDE
     Indication: Osteochondrodysplasia
     Dosage: 0.4 MICROGRAM, QD
     Route: 058
     Dates: start: 20240515

REACTIONS (3)
  - Arthralgia [Unknown]
  - Joint noise [Unknown]
  - Constipation [Unknown]

NARRATIVE: CASE EVENT DATE: 20240612
